FAERS Safety Report 6165070-1 (Version None)
Quarter: 2009Q2

REPORT INFORMATION
  Report Type: 
  Country: None (occurrence: None)
  Receive Date: 20090423
  Receipt Date: 20090418
  Transmission Date: 20091009
  Serious: Yes (Hospitalization)
  Sender: FDA-Public Use
  Company Number: US-AVENTIS-200913331US

PATIENT
  Sex: Female

DRUGS (7)
  1. LANTUS [Suspect]
     Dosage: DOSE: 17 UNITS IN AM
     Route: 058
  2. OPTICLIK (INSULIN INJECTION PEN) [Suspect]
     Dosage: DOSE: UNK
  3. METOPROLOL SUCCINATE [Concomitant]
  4. ENALAPRIL [Concomitant]
  5. METFORMIN HCL [Concomitant]
  6. GLIMEPIRIDE [Concomitant]
  7. DIOVANE [Concomitant]

REACTIONS (3)
  - BLOOD PRESSURE INCREASED [None]
  - CONDITION AGGRAVATED [None]
  - FALL [None]
